FAERS Safety Report 5446546-9 (Version None)
Quarter: 2007Q3

REPORT INFORMATION
  Report Type: 
  Country: None (occurrence: None)
  Receive Date: 20070907
  Receipt Date: 20070830
  Transmission Date: 20080115
  Serious: Yes (Death, Other)
  Sender: FDA-Public Use
  Company Number: US-AMGEN-US040068

PATIENT
  Sex: Female

DRUGS (3)
  1. ENBREL [Suspect]
     Indication: RHEUMATOID ARTHRITIS
     Route: 058
     Dates: start: 20030113, end: 20030301
  2. ARAVA [Suspect]
     Route: 048
     Dates: start: 20020411, end: 20020927
  3. PLAQUENIL [Suspect]
     Route: 048
     Dates: start: 20021023, end: 20030113

REACTIONS (1)
  - ADENOSQUAMOUS CELL LUNG CANCER [None]
